FAERS Safety Report 19680302 (Version 1)
Quarter: 2021Q3

REPORT INFORMATION
  Report Type: Spontaneous
  Country: GB (occurrence: GB)
  Receive Date: 20210810
  Receipt Date: 20210810
  Transmission Date: 20211014
  Serious: Yes (Death)
  Sender: FDA-Public Use
  Company Number: GB-TEVA-2011A-01682

PATIENT
  Age: 86 Year
  Sex: Female

DRUGS (2)
  1. CO?AMOXICLAV [Suspect]
     Active Substance: AMOXICILLIN\CLAVULANATE POTASSIUM
     Indication: CHRONIC OBSTRUCTIVE PULMONARY DISEASE
     Dosage: 3 DOSAGE FORMS DAILY;
     Route: 048
     Dates: start: 20100602, end: 20100609
  2. CO?AMOXICLAV [Suspect]
     Active Substance: AMOXICILLIN\CLAVULANATE POTASSIUM
     Indication: LOWER RESPIRATORY TRACT INFECTION
     Dosage: 3 DOSAGE FORMS DAILY;
     Route: 048
     Dates: start: 20100615, end: 20100622

REACTIONS (5)
  - Pneumonia [Fatal]
  - Subdural haemorrhage [Fatal]
  - Sepsis [Fatal]
  - Hepatic failure [Fatal]
  - Cholestasis [Fatal]

NARRATIVE: CASE EVENT DATE: 20100723
